FAERS Safety Report 11867174 (Version 1)
Quarter: 2015Q4

REPORT INFORMATION
  Report Type: Spontaneous
  Country: US (occurrence: None)
  Receive Date: 20151223
  Receipt Date: 20151223
  Transmission Date: 20160305
  Serious: Yes (Hospitalization)
  Sender: FDA-Public Use
  Company Number: None

PATIENT
  Age: 70 Year
  Sex: Male

DRUGS (2)
  1. MORPHINE [Suspect]
     Active Substance: MORPHINE
     Indication: DYSPHAGIA
     Route: 060
     Dates: start: 20151113, end: 20151116
  2. OXYCODONE [Suspect]
     Active Substance: OXYCODONE
     Route: 048
     Dates: start: 20151116, end: 20151116

REACTIONS (2)
  - Rash papular [None]
  - Drug eruption [None]

NARRATIVE: CASE EVENT DATE: 20151116
